FAERS Safety Report 6294158-X (Version None)
Quarter: 2009Q3

REPORT INFORMATION
  Report Type: 
  Country: None (occurrence: None)
  Receive Date: 20090803
  Receipt Date: 20090114
  Transmission Date: 20100115
  Serious: No
  Sender: FDA-Public Use
  Company Number: A0763547A

PATIENT
  Age: 61 Year
  Sex: Female

DRUGS (1)
  1. NICORETTE [Suspect]
     Dates: start: 20090112

REACTIONS (2)
  - FOOD CRAVING [None]
  - PRODUCTIVE COUGH [None]
